FAERS Safety Report 4375233-3 (Version None)
Quarter: 2004Q2

REPORT INFORMATION
  Report Type: 
  Country: None (occurrence: None)
  Receive Date: 20040607
  Receipt Date: 20040525
  Transmission Date: 20050107
  Serious: Yes (Hospitalization)
  Sender: FDA-Public Use
  Company Number: 04-05-0755

PATIENT
  Age: 29 Year
  Sex: Female

DRUGS (3)
  1. ALBUTEROL [Suspect]
     Indication: ASTHMA
  2. QVAR INHALATION AEROSOL - IVAX LOBORAT [Suspect]
  3. OMEPRAZOLE [Suspect]
     Dosage: 20MG ORAL
     Route: 048

REACTIONS (5)
  - BILIARY DILATATION [None]
  - CHOLEDOCHAL CYST [None]
  - DILATATION INTRAHEPATIC DUCT ACQUIRED [None]
  - GASTROENTERITIS EOSINOPHILIC [None]
  - HEPATITIS [None]
